FAERS Safety Report 8034497 (Version 2)
Quarter: 2013Q2

REPORT INFORMATION
  Report Type: Spontaneous
  Country: US (occurrence: None)
  Receive Date: 20110707
  Receipt Date: 20120705
  Transmission Date: 20140414
  Serious: Yes (Hospitalization)
  Sender: FDA-Public Use
  Company Number: US-CYPR-2011-000019

PATIENT
  Age: 84 Year
  Sex: Male
  Weight: 69.85 kg

DRUGS (8)
  1. CLOPIDOGREL [Suspect]
     Indication: ANTIPLATELET THERAPY
     Dosage: (75 MG QD ORAL) ; (75 MG QD ORAL)
     Route: 048
     Dates: start: 20101201, end: 20110505
  2. ASPIRIN [Suspect]
     Indication: CORONARY ARTERY DISEASE
     Dosage: (325 MG QD ORAL) ; ((325 MG QD ORAL)
     Route: 048
     Dates: start: 20091217, end: 20110505
  3. LEVOTHYROXINE [Concomitant]
  4. FOLIC ACID [Concomitant]
  5. ISOSORBIDE MONONITRATE [Concomitant]
  6. LIPITOR [Concomitant]
  7. LEVAQUIN [Concomitant]
  8. CYPHER [Concomitant]

REACTIONS (1)
  - CHOLECYSTITIS CHRONIC [None]
